FAERS Safety Report 19675054 (Version 1)
Quarter: 2021Q3

REPORT INFORMATION
  Report Type: Other
  Country: US (occurrence: US)
  Receive Date: 20210809
  Receipt Date: 20210809
  Transmission Date: 20211014
  Serious: Yes (Other)
  Sender: FDA-Public Use
  Company Number: US-ROCHE-2883385

PATIENT
  Age: 45 Year
  Sex: Female
  Weight: 64.92 kg

DRUGS (2)
  1. VITAMIN D3 [Concomitant]
     Active Substance: CHOLECALCIFEROL
     Dosage: ONGOING : YES
     Route: 048
  2. OCREVUS [Suspect]
     Active Substance: OCRELIZUMAB
     Indication: MULTIPLE SCLEROSIS
     Dosage: YES, DOT : 2021?06?04, 2020?12?11, 2020?06?19, 2019?09?25, 2019?03?29, 2018?10?12,?2018?09?29
     Route: 042

REACTIONS (5)
  - Anosmia [Unknown]
  - Tooth erosion [Not Recovered/Not Resolved]
  - Pneumonia [Recovered/Resolved]
  - Dental caries [Not Recovered/Not Resolved]
  - Ageusia [Unknown]

NARRATIVE: CASE EVENT DATE: 202106
